FAERS Safety Report 9797202 (Version 7)
Quarter: 2014Q2

REPORT INFORMATION
  Report Type: Report from Study
  Country: US (occurrence: US)
  Receive Date: 20140106
  Receipt Date: 20140410
  Transmission Date: 20141212
  Serious: Yes (Other)
  Sender: FDA-Public Use
  Company Number: US-ROCHE-1314386

PATIENT
  Sex: Male

DRUGS (4)
  1. PEGASYS [Suspect]
     Indication: CHRONIC HEPATITIS C
     Route: 058
     Dates: start: 20131122
  2. RIBAVIRIN [Suspect]
     Indication: CHRONIC HEPATITIS C
     Dosage: DIVIDED DOSES
     Route: 048
     Dates: start: 20131122
  3. TELAPREVIR [Suspect]
     Indication: CHRONIC HEPATITIS C
     Route: 065
     Dates: start: 20140221
  4. SOVALDI [Concomitant]
     Route: 065
     Dates: start: 20140221

REACTIONS (14)
  - Blood bilirubin abnormal [Unknown]
  - Injection related reaction [Unknown]
  - Feeling hot [Recovered/Resolved]
  - Injection site erythema [Recovering/Resolving]
  - Pruritus [Recovered/Resolved]
  - Rash pruritic [Recovered/Resolved]
  - Platelet count increased [Unknown]
  - Injection site haemorrhage [Unknown]
  - Erythema [Unknown]
  - Tooth abscess [Unknown]
  - Ischaemia [Unknown]
  - Hepatic enzyme increased [Unknown]
  - White blood cell count decreased [Unknown]
  - Red blood cell count decreased [Unknown]
